FAERS Safety Report 14516548 (Version 10)
Quarter: 2018Q3

REPORT INFORMATION
  Report Type: Spontaneous
  Country: GB (occurrence: GB)
  Receive Date: 20180212
  Receipt Date: 20180914
  Transmission Date: 20181010
  Serious: Yes (Death, Other)
  Sender: FDA-Public Use
  Company Number: GB-009507513-1802GBR004855

PATIENT
  Sex: Female

DRUGS (10)
  1. PREGABALIN. [Suspect]
     Active Substance: PREGABALIN
     Dosage: UNK
     Route: 065
     Dates: start: 20150303
  2. ORAMORPH [Suspect]
     Active Substance: MORPHINE SULFATE
     Dosage: 10 MG/5MLS AS REQUIRED BASIS EVERY 4 HOURS, 500 ML
     Dates: start: 20150605
  3. ORAMORPH [Suspect]
     Active Substance: MORPHINE SULFATE
     Dosage: 10 MG/5MLS AS REQUIRED BASIS EVERY 4 HOURS, FURTHER 100 ML
     Dates: start: 20150629
  4. ORAMORPH [Suspect]
     Active Substance: MORPHINE SULFATE
     Dosage: 10 MG/5MLS AS REQUIRED BASIS EVERY 4 HOURS, FURTHER 280 ML
     Dates: start: 20150703
  5. MIRTAZAPINE. [Suspect]
     Active Substance: MIRTAZAPINE
     Dosage: UNK
     Route: 065
     Dates: start: 20150303
  6. MORPHINE [Suspect]
     Active Substance: MORPHINE
     Dosage: 90 MG, BID INITIALLY (REDUCING DOSE OF SLOW RELEASE ORAL MORPHINE)
     Route: 048
  7. ORAMORPH [Suspect]
     Active Substance: MORPHINE SULFATE
     Dosage: 10 MG/5MLS AS REQUIRED BASIS EVERY 4 HOURS, 300 ML
     Dates: start: 20150320
  8. ZOMORPH [Suspect]
     Active Substance: MORPHINE SULFATE
     Dosage: UNK
  9. TRAMADOL HYDROCHLORIDE. [Suspect]
     Active Substance: TRAMADOL HYDROCHLORIDE
     Dosage: UNK
     Route: 065
  10. ORAMORPH [Suspect]
     Active Substance: MORPHINE SULFATE
     Dosage: 10 MG/5MLS AS REQUIRED BASIS EVERY 4 HOURS, FURTHER 500 ML: AVERAGE 7 DOSES DAILY
     Dates: start: 20150619

REACTIONS (2)
  - Toxicity to various agents [Fatal]
  - Medication error [Fatal]
